FAERS Safety Report 8438935-5 (Version None)
Quarter: 2012Q2

REPORT INFORMATION
  Report Type: 
  Country: None (occurrence: None)
  Receive Date: 20120615
  Receipt Date: 20120607
  Transmission Date: 20120825
  Serious: Yes (Other)
  Sender: FDA-Public Use
  Company Number: IT-ELI_LILLY_AND_COMPANY-IT201206002495

PATIENT
  Sex: Female

DRUGS (3)
  1. HUMALOG MIX 75/25 [Suspect]
     Dosage: UNK
  2. HUMALOG MIX 75/25 [Suspect]
     Indication: DIABETES MELLITUS
     Dosage: 26 IU, QD
     Route: 058
     Dates: start: 20120503, end: 20120511
  3. NEBIVOLOL HCL [Concomitant]
     Dosage: 2.5 MG, UNKNOWN
     Route: 048

REACTIONS (1)
  - HYPERGLYCAEMIA [None]
